FAERS Safety Report 6128344-6 (Version None)
Quarter: 2009Q1

REPORT INFORMATION
  Report Type: 
  Country: None (occurrence: None)
  Receive Date: 20090323
  Receipt Date: 20090316
  Transmission Date: 20090719
  Serious: Yes (Hospitalization)
  Sender: FDA-Public Use
  Company Number: B0564407A

PATIENT
  Age: 22 Year
  Sex: Male

DRUGS (7)
  1. RELENZA [Suspect]
     Indication: INFLUENZA
     Dosage: 10MG TWICE PER DAY
     Route: 055
     Dates: start: 20090303, end: 20090305
  2. VEEN-D [Concomitant]
     Indication: DEHYDRATION
     Dosage: 1000ML PER DAY
     Route: 042
     Dates: start: 20090305, end: 20090309
  3. AMIGRAN [Concomitant]
     Indication: DEHYDRATION
     Dosage: 500ML PER DAY
     Route: 042
     Dates: start: 20090305, end: 20090306
  4. SOLITA-T NO.3 [Concomitant]
     Indication: DEHYDRATION
     Dosage: 500ML PER DAY
     Route: 042
     Dates: start: 20090305, end: 20090306
  5. ASCORBIC ACID [Concomitant]
     Indication: DEHYDRATION
     Dates: start: 20090305, end: 20090309
  6. FLAVINE ADENINE DINUCLEOTIDE [Concomitant]
     Indication: DEHYDRATION
     Route: 065
     Dates: start: 20090305, end: 20090309
  7. ALFALFA [Concomitant]
     Indication: DEHYDRATION
     Route: 042
     Dates: start: 20090305, end: 20090309

REACTIONS (5)
  - ABDOMINAL PAIN [None]
  - FACE OEDEMA [None]
  - GASTROENTERITIS [None]
  - HYPOALBUMINAEMIA [None]
  - NEPHROTIC SYNDROME [None]
